FAERS Safety Report 11340325 (Version 1)
Quarter: 2015Q3

REPORT INFORMATION
  Report Type: Spontaneous
  Country: US (occurrence: None)
  Receive Date: 20150803
  Receipt Date: 20150803
  Transmission Date: 20151125
  Serious: No
  Sender: FDA-Public Use
  Company Number: None

PATIENT
  Age: 51 Year
  Sex: Male

DRUGS (1)
  1. ENBREL [Suspect]
     Active Substance: ETANERCEPT
     Indication: RHEUMATOID ARTHRITIS
     Dosage: 50MG?Q WEEK?SUB Q
     Dates: start: 20140724

REACTIONS (5)
  - Hypometabolism [None]
  - Fatigue [None]
  - Blood glucose increased [None]
  - Somnolence [None]
  - Blood testosterone decreased [None]

NARRATIVE: CASE EVENT DATE: 20150731
